FAERS Safety Report 14610360 (Version 2)
Quarter: 2018Q2

REPORT INFORMATION
  Report Type: Report from Study
  Country: DE (occurrence: DE)
  Receive Date: 20180307
  Receipt Date: 20180424
  Transmission Date: 20180711
  Serious: Yes (Hospitalization)
  Sender: FDA-Public Use
  Company Number: DE-TEVA-2018-DE-864502

PATIENT
  Age: 53 Year
  Sex: Female
  Weight: 71 kg

DRUGS (10)
  1. PANTOPRAZOLE [Concomitant]
     Active Substance: PANTOPRAZOLE
     Dosage: 40 MILLIGRAM DAILY; DOSAGE FORM: UNSPECIFIED
     Route: 065
  2. METHOTREXATE. [Suspect]
     Active Substance: METHOTREXATE
     Indication: RHEUMATOID ARTHRITIS
     Dosage: DOSAGE FORM: UNSPECIFIED
     Route: 058
     Dates: start: 20130813, end: 20140625
  3. PREDNISOLON [Concomitant]
     Active Substance: PREDNISOLONE
     Dosage: DOSAGE FORM: UNSPECIFIED
     Route: 065
     Dates: start: 20130801
  4. LEFLUNOMIDE. [Concomitant]
     Active Substance: LEFLUNOMIDE
     Dates: start: 20140328
  5. DICLOFENAC [Concomitant]
     Active Substance: DICLOFENAC
     Dosage: DOSAGE FORM: UNSPECIFIED
     Route: 065
  6. ALENDRONIC ACID [Concomitant]
     Active Substance: ALENDRONIC ACID
     Dosage: DOSAGE FORM: UNSPECIFIED
     Route: 065
     Dates: start: 2013
  7. VIGANTOLETTEN [Concomitant]
     Active Substance: CHOLECALCIFEROL
     Dosage: DOSAGE FORM: UNSPECIFIED
     Route: 065
  8. METHOTREXATE. [Suspect]
     Active Substance: METHOTREXATE
     Dosage: DOSAGE FORM: UNSPECIFIED
     Route: 058
     Dates: start: 20031022, end: 20031121
  9. SIMPONI [Suspect]
     Active Substance: GOLIMUMAB
     Indication: RHEUMATOID ARTHRITIS
     Route: 058
     Dates: start: 20140408, end: 20140408
  10. ADALIMUMAB [Concomitant]
     Active Substance: ADALIMUMAB
     Dosage: DOSAGE FORM: UNSPECIFIED
     Route: 065
     Dates: start: 20140708

REACTIONS (4)
  - Interstitial lung disease [Recovered/Resolved]
  - Influenza like illness [Not Recovered/Not Resolved]
  - Pneumonia [Recovered/Resolved]
  - Pneumonitis chemical [Recovered/Resolved]

NARRATIVE: CASE EVENT DATE: 20140419
